FAERS Safety Report 17970307 (Version 1)
Quarter: 2020Q3

REPORT INFORMATION
  Report Type: Spontaneous
  Country: DE (occurrence: DE)
  Receive Date: 20200701
  Receipt Date: 20200701
  Transmission Date: 20201103
  Serious: Yes (Life-Threatening, Hospitalization)
  Sender: FDA-Public Use
  Company Number: NVSC2020DE185266

PATIENT

DRUGS (2)
  1. ANTIMYCOTIC [Concomitant]
     Indication: PRODUCT USED FOR UNKNOWN INDICATION
     Dosage: UNK
     Route: 065
  2. DESFERAL [Suspect]
     Active Substance: DEFEROXAMINE MESYLATE
     Indication: HAEMOSIDEROSIS
     Dosage: 40 MG/KG (40 MG/KG BODYWEIGHT)
     Route: 042
     Dates: start: 20200627, end: 20200628

REACTIONS (3)
  - General physical condition abnormal [Not Recovered/Not Resolved]
  - Respiratory distress [Unknown]
  - Serum ferritin increased [Not Recovered/Not Resolved]

NARRATIVE: CASE EVENT DATE: 202006
